FAERS Safety Report 8484265-5 (Version None)
Quarter: 2012Q3

REPORT INFORMATION
  Report Type: 
  Country: None (occurrence: None)
  Receive Date: 20120703
  Receipt Date: 20120622
  Transmission Date: 20120928
  Serious: Yes (Death, Hospitalization)
  Sender: FDA-Public Use
  Company Number: US-CELGENEUS-163-21880-12053364

PATIENT
  Sex: Female
  Weight: 33.006 kg

DRUGS (2)
  1. CARFILZOMIB [Suspect]
     Indication: MULTIPLE MYELOMA
     Route: 065
  2. CC-4047 [Suspect]
     Indication: MULTIPLE MYELOMA
     Route: 065

REACTIONS (1)
  - RENAL IMPAIRMENT [None]
